FAERS Safety Report 5814854-5 (Version None)
Quarter: 2008Q3

REPORT INFORMATION
  Report Type: 
  Country: None (occurrence: None)
  Receive Date: 20080718
  Receipt Date: 20080713
  Transmission Date: 20090109
  Serious: Yes (Other)
  Sender: FDA-Public Use
  Company Number: US-AMGEN-KDL294261

PATIENT
  Sex: Female

DRUGS (3)
  1. ENBREL [Suspect]
     Indication: RHEUMATOID ARTHRITIS
     Route: 058
     Dates: start: 20080701
  2. SINGULAIR [Concomitant]
  3. PREDNISONE TAB [Concomitant]

REACTIONS (7)
  - CHEST DISCOMFORT [None]
  - HYPOAESTHESIA ORAL [None]
  - INJECTION SITE PRURITUS [None]
  - INJECTION SITE RASH [None]
  - PRURITUS [None]
  - RASH GENERALISED [None]
  - SWOLLEN TONGUE [None]
